FAERS Safety Report 5682985-9 (Version None)
Quarter: 2008Q1

REPORT INFORMATION
  Report Type: 
  Country: None (occurrence: None)
  Receive Date: 20080327
  Receipt Date: 20080317
  Transmission Date: 20080703
  Serious: Yes (Other)
  Sender: FDA-Public Use
  Company Number: JP-WYE-H03097108

PATIENT
  Age: 60 Year
  Sex: Male

DRUGS (1)
  1. AMIODARONE HCL [Suspect]
     Indication: VENTRICULAR TACHYCARDIA
     Route: 048
     Dates: start: 20030101, end: 20070926

REACTIONS (3)
  - DRUG INEFFECTIVE [None]
  - IMPLANTABLE DEFIBRILLATOR MALFUNCTION [None]
  - LUNG DISORDER [None]
